FAERS Safety Report 7015156-4 (Version None)
Quarter: 2010Q3

REPORT INFORMATION
  Report Type: 
  Country: None (occurrence: None)
  Receive Date: 20100927
  Receipt Date: 20091209
  Transmission Date: 20110219
  Serious: No
  Sender: FDA-Public Use
  Company Number: US-ASTRAZENECA-2009UW08335

PATIENT
  Age: 65 Year
  Sex: Female
  Weight: 93.9 kg

DRUGS (9)
  1. ARIMIDEX [Suspect]
     Route: 048
     Dates: start: 20060101
  2. NEXIUM [Suspect]
     Route: 048
  3. ZOMIG [Suspect]
     Route: 048
  4. PAXIL [Concomitant]
  5. XANAX [Concomitant]
  6. HYDROCHLOROTHIAZIDE [Concomitant]
  7. POTASSIUM [Concomitant]
  8. FLEXERIL [Concomitant]
  9. VICODIN [Concomitant]

REACTIONS (5)
  - CONSTIPATION [None]
  - HOT FLUSH [None]
  - HYPERHIDROSIS [None]
  - INSOMNIA [None]
  - MIGRAINE [None]
